FAERS Safety Report 6944440-5 (Version None)
Quarter: 2010Q3

REPORT INFORMATION
  Report Type: 
  Country: None (occurrence: None)
  Receive Date: 20100827
  Receipt Date: 20100817
  Transmission Date: 20110219
  Serious: Yes (Other)
  Sender: FDA-Public Use
  Company Number: JP-PFIZER INC-2010098220

PATIENT
  Age: 11 Year
  Sex: Male

DRUGS (6)
  1. ALDACTONE [Suspect]
     Indication: POLYURIA
     Dosage: 40 MG/DAY (MIN) - 100 MG/DAY (MAX)
     Route: 048
     Dates: start: 20100626, end: 20100706
  2. PHENOBARBITAL [Suspect]
  3. DIAZEPAM [Concomitant]
  4. ROCEPHIN [Concomitant]
  5. PENMALIN [Concomitant]
  6. LASIX [Concomitant]

REACTIONS (1)
  - DRUG RASH WITH EOSINOPHILIA AND SYSTEMIC SYMPTOMS [None]
